FAERS Safety Report 11890433 (Version 1)
Quarter: 2016Q1

REPORT INFORMATION
  Report Type: Other
  Country: US (occurrence: US)
  Receive Date: 20160105
  Receipt Date: 20160105
  Transmission Date: 20160526
  Serious: Yes (Other)
  Sender: FDA-Public Use
  Company Number: US-UNITED THERAPEUTICS-UNT-2015-016570

PATIENT
  Age: 78 Year
  Sex: Female
  Weight: 52.15 kg

DRUGS (2)
  1. TYVASO [Suspect]
     Active Substance: TREPROSTINIL
     Indication: PULMONARY ARTERIAL HYPERTENSION
     Dosage: 72-90 MICROGRAMS, QID
     Dates: start: 20110810
  2. ADCIRCA [Concomitant]
     Active Substance: TADALAFIL
     Indication: PRODUCT USED FOR UNKNOWN INDICATION

REACTIONS (3)
  - Product use issue [Unknown]
  - Hepatic cirrhosis [Unknown]
  - Weight decreased [Unknown]

NARRATIVE: CASE EVENT DATE: 201512
